FAERS Safety Report 11005361 (Version 3)
Quarter: 2015Q3

REPORT INFORMATION
  Report Type: Spontaneous
  Country: US (occurrence: US)
  Receive Date: 20150409
  Receipt Date: 20150716
  Transmission Date: 20151125
  Serious: Yes (Hospitalization, Disabling, Other)
  Sender: FDA-Public Use
  Company Number: US-009507513-1504USA003770

PATIENT
  Sex: Female
  Weight: 90.7 kg

DRUGS (3)
  1. VICTOZA [Suspect]
     Active Substance: LIRAGLUTIDE
     Indication: TYPE 2 DIABETES MELLITUS
     Dosage: 1.2 MG, QD
     Dates: start: 20120914, end: 20121223
  2. JANUVIA [Suspect]
     Active Substance: SITAGLIPTIN PHOSPHATE
     Indication: TYPE 2 DIABETES MELLITUS
     Dosage: 100 MG, QD
     Route: 048
     Dates: start: 20110926, end: 20120429
  3. VICTOZA [Suspect]
     Active Substance: LIRAGLUTIDE
     Dosage: 1.8 MG, QD
     Dates: start: 20130114, end: 20130124

REACTIONS (23)
  - Adenocarcinoma pancreas [Unknown]
  - Full blood count decreased [Unknown]
  - Anxiety [Unknown]
  - Hepatic enzyme increased [Unknown]
  - Arteriosclerosis [Unknown]
  - Cellulitis [Unknown]
  - Appendicectomy [Unknown]
  - Bile duct stent insertion [Unknown]
  - Procedural nausea [Unknown]
  - Abdominal wall abscess [Unknown]
  - Hepatic lesion [Unknown]
  - Pleural effusion [Unknown]
  - Pancreatitis acute [Unknown]
  - Impaired gastric emptying [Unknown]
  - Trigger finger [Unknown]
  - Pancreaticoduodenectomy [Unknown]
  - Small intestinal obstruction [Unknown]
  - Ventricular tachycardia [Unknown]
  - Ascites [Unknown]
  - Dyspnoea [Unknown]
  - Gastrostomy [Unknown]
  - Depression [Unknown]
  - Radiotherapy [Unknown]

NARRATIVE: CASE EVENT DATE: 20120501
